FAERS Safety Report 6125768-8 (Version None)
Quarter: 2009Q1

REPORT INFORMATION
  Report Type: 
  Country: None (occurrence: None)
  Receive Date: 20090318
  Receipt Date: 20090305
  Transmission Date: 20090719
  Serious: Yes (Life-Threatening)
  Sender: FDA-Public Use
  Company Number: 2009AL001377

PATIENT
  Age: 42 Year
  Sex: Female

DRUGS (2)
  1. MELOXICAM [Suspect]
     Indication: ARTHRITIS
     Dosage: 7.5 MG; QD; PO
     Route: 048
     Dates: start: 19980101
  2. AMITRIPTYLINE HCL [Concomitant]

REACTIONS (1)
  - PULMONARY EMBOLISM [None]
